FAERS Safety Report 4508313-X (Version None)
Quarter: 2004Q4

REPORT INFORMATION
  Report Type: 
  Country: None (occurrence: None)
  Receive Date: 20041123
  Receipt Date: 20040105
  Transmission Date: 20050328
  Serious: No
  Sender: FDA-Public Use
  Company Number: US-GLAXOSMITHKLINE-A0491328A

PATIENT
  Age: 30 Year
  Sex: Female
  Weight: 88.6 kg

DRUGS (5)
  1. WELLBUTRIN SR [Suspect]
     Dosage: 200MG TWICE PER DAY
     Route: 048
     Dates: start: 20030901
  2. IMITREX [Concomitant]
     Indication: MIGRAINE
     Dosage: 50MG AS REQUIRED
     Route: 048
     Dates: start: 19980101
  3. ZOMIG [Concomitant]
     Indication: MIGRAINE
     Dosage: 5MG AS REQUIRED
     Route: 048
     Dates: start: 20030101
  4. ZANAFLEX [Concomitant]
     Indication: MIGRAINE PROPHYLAXIS
     Route: 048
     Dates: start: 20030101
  5. IMITREX [Concomitant]
     Dosage: 6MG AS REQUIRED
     Route: 058
     Dates: start: 20030101

REACTIONS (1)
  - INSOMNIA [None]
